FAERS Safety Report 23269930 (Version 2)
Quarter: 2024Q2

REPORT INFORMATION
  Report Type: Report from Study
  Country: US (occurrence: US)
  Receive Date: 20231207
  Receipt Date: 20240621
  Transmission Date: 20240716
  Serious: Yes (Other)
  Sender: FDA-Public Use
  Company Number: US-ABBVIE-5522133

PATIENT
  Sex: Female

DRUGS (3)
  1. HUMIRA [Suspect]
     Active Substance: ADALIMUMAB
     Indication: Product used for unknown indication
     Route: 058
  2. RINVOQ [Suspect]
     Active Substance: UPADACITINIB
     Indication: Product used for unknown indication
     Route: 048
  3. COVID-19 VACCINE NOS [Suspect]
     Active Substance: COVID-19 VACCINE
     Indication: COVID-19 immunisation
     Route: 065

REACTIONS (14)
  - Spinal operation [Unknown]
  - Drug ineffective [Unknown]
  - Loss of consciousness [Unknown]
  - Pain [Unknown]
  - COVID-19 [Unknown]
  - Pain of skin [Unknown]
  - Somnolence [Unknown]
  - Swelling [Recovering/Resolving]
  - Foot fracture [Recovering/Resolving]
  - Autoimmune disorder [Unknown]
  - Surgical failure [Unknown]
  - Procedural pain [Unknown]
  - Fall [Unknown]
  - Pain [Recovered/Resolved]

NARRATIVE: CASE EVENT DATE: 20220101
